FAERS Safety Report 21358531 (Version 2)
Quarter: 2022Q4

REPORT INFORMATION
  Report Type: Spontaneous
  Country: JP (occurrence: JP)
  Receive Date: 20220921
  Receipt Date: 20221017
  Transmission Date: 20230112
  Serious: Yes (Hospitalization, Other)
  Sender: FDA-Public Use
  Company Number: JP-BRISTOL-MYERS SQUIBB COMPANY-2022-094170

PATIENT
  Age: 46 Year
  Sex: Male

DRUGS (2)
  1. YERVOY [Suspect]
     Active Substance: IPILIMUMAB
     Indication: Colorectal cancer
     Dosage: Q3WK
     Route: 041
     Dates: start: 20220606, end: 20220818
  2. OPDIVO [Suspect]
     Active Substance: NIVOLUMAB
     Indication: Colorectal cancer
     Dosage: Q3WK
     Route: 041
     Dates: start: 20220606, end: 20220818

REACTIONS (3)
  - Hyperthyroidism [Recovering/Resolving]
  - Adrenal insufficiency [Recovering/Resolving]
  - Pyramidal tract syndrome [Recovering/Resolving]

NARRATIVE: CASE EVENT DATE: 20220820
